FAERS Safety Report 12362331 (Version 1)
Quarter: 2016Q2

REPORT INFORMATION
  Report Type: Other
  Country: GB (occurrence: GB)
  Receive Date: 20160512
  Receipt Date: 20160512
  Transmission Date: 20160815
  Serious: Yes (Other)
  Sender: FDA-Public Use
  Company Number: GB-MYLANLABS-2016M1018783

PATIENT

DRUGS (1)
  1. GABAPENTIN. [Suspect]
     Active Substance: GABAPENTIN
     Indication: MIGRAINE
     Dosage: 600 MG, UNK
     Route: 048
     Dates: start: 20160413

REACTIONS (4)
  - Alcohol interaction [Recovered/Resolved]
  - Dizziness [Unknown]
  - Balance disorder [Unknown]
  - Alcohol intolerance [Recovered/Resolved]

NARRATIVE: CASE EVENT DATE: 20160413
